FAERS Safety Report 5658908-5 (Version None)
Quarter: 2008Q1

REPORT INFORMATION
  Report Type: 
  Country: None (occurrence: None)
  Receive Date: 20080310
  Receipt Date: 20070629
  Transmission Date: 20080703
  Serious: Yes (Other)
  Sender: FDA-Public Use
  Company Number: US-BAYER-200711443BCC

PATIENT
  Age: 99 Year
  Sex: Female
  Weight: 57 kg

DRUGS (4)
  1. ALEVE [Suspect]
     Indication: SCIATICA
     Dosage: UNIT DOSE: 220 MG
     Route: 048
     Dates: start: 20070301
  2. ALEVE [Suspect]
     Dosage: TOTAL DAILY DOSE: 220 MG  UNIT DOSE: 220 MG
     Route: 048
  3. HIGH BLOOD PRESSURE MEDICATION [Concomitant]
  4. WATER PILL [Concomitant]

REACTIONS (3)
  - CYSTITIS [None]
  - HAEMATOCHEZIA [None]
  - STOMACH DISCOMFORT [None]
